FAERS Safety Report 9769042 (Version 2)
Quarter: 2014Q1

REPORT INFORMATION
  Report Type: Spontaneous
  Country: JP (occurrence: JP)
  Receive Date: 20131218
  Receipt Date: 20140204
  Transmission Date: 20141002
  Serious: Yes (Hospitalization)
  Sender: FDA-Public Use
  Company Number: JP-TAKEDA-2013TEU003256

PATIENT
  Age: 76 Year
  Sex: Female

DRUGS (47)
  1. TACHOSIL [Suspect]
     Indication: PROPHYLAXIS
     Dosage: 1 SHEET /1DAY
     Dates: start: 20130717, end: 20130717
  2. INOVAN                             /00360702/ [Concomitant]
     Indication: AORTIC ANEURYSM
     Dosage: 2 ML/H, QD
     Dates: start: 20130717, end: 20130719
  3. INOVAN                             /00360702/ [Concomitant]
     Indication: AORTIC VALVE INCOMPETENCE
  4. DOBUPUM [Concomitant]
     Indication: AORTIC ANEURYSM
     Dosage: 3 ML/H, QD
     Dates: start: 20130717, end: 20130718
  5. DOBUPUM [Concomitant]
     Indication: AORTIC VALVE INCOMPETENCE
  6. NICARDIPINE HYDROCHLORIDE [Concomitant]
     Indication: AORTIC ANEURYSM
     Dosage: 2ML/H , QD
     Dates: start: 20130717, end: 20130717
  7. NICARDIPINE HYDROCHLORIDE [Concomitant]
     Indication: AORTIC VALVE INCOMPETENCE
  8. FOSFOMYCIN                         /00552503/ [Concomitant]
     Indication: AORTIC ANEURYSM
     Dosage: 1 VIAL, BID
     Dates: start: 20130717, end: 20130720
  9. FOSFOMYCIN                         /00552503/ [Concomitant]
     Indication: AORTIC VALVE INCOMPETENCE
  10. YUNASUPIN [Concomitant]
     Indication: AORTIC ANEURYSM
     Dosage: 1 VIAL , BID
     Dates: start: 20130717, end: 20130720
  11. YUNASUPIN [Concomitant]
     Indication: AORTIC VALVE INCOMPETENCE
  12. PRECEDEX [Concomitant]
     Indication: AORTIC ANEURYSM
     Dosage: 10?G/H , QD
     Dates: start: 20130717, end: 20130719
  13. PRECEDEX [Concomitant]
     Indication: AORTIC VALVE INCOMPETENCE
  14. FAMOTIDINE [Concomitant]
     Indication: AORTIC ANEURYSM
     Dosage: 1A, QD
     Dates: start: 20130717, end: 20130720
  15. FAMOTIDINE [Concomitant]
     Indication: AORTIC VALVE INCOMPETENCE
  16. NOVO HEPARIN [Concomitant]
     Indication: AORTIC ANEURYSM
     Dosage: 6000 IU, QD
     Dates: start: 20130718, end: 20130725
  17. NOVO HEPARIN [Concomitant]
     Indication: AORTIC VALVE INCOMPETENCE
  18. ARTIST [Concomitant]
     Indication: AORTIC ANEURYSM
     Dosage: 2.5 MG, BID
     Dates: end: 20130717
  19. ARTIST [Concomitant]
     Indication: AORTIC VALVE INCOMPETENCE
     Dosage: 2.5 MG, UNK
     Dates: start: 20130719, end: 20130728
  20. SLOW-K [Concomitant]
     Indication: HYPOKALAEMIA
     Dosage: 600 MG, BID
     Dates: end: 20130716
  21. DEPAS [Concomitant]
     Indication: INSOMNIA
     Dosage: 0.5 MG, QD
     Dates: end: 20130716
  22. RANITIDINE [Concomitant]
     Indication: GASTRITIS
     Dosage: 150 MG, QD
     Dates: end: 20130716
  23. MEVALECT [Concomitant]
     Indication: HYPERLIPIDAEMIA
     Dosage: 10 MG, QD
     Dates: end: 20130716
  24. BAYASPIRIN [Concomitant]
     Indication: AORTIC ANEURYSM
     Dosage: 100 MG, QD
     Dates: end: 20130711
  25. BAYASPIRIN [Concomitant]
     Indication: AORTIC VALVE INCOMPETENCE
  26. AMLODIPINE [Concomitant]
     Indication: HYPERTENSION
     Dosage: 2.5 MG, QD
     Dates: end: 20130716
  27. FRANDOL [Concomitant]
     Indication: AORTIC ANEURYSM
     Dosage: 1SHEET , QD
  28. FRANDOL [Concomitant]
     Indication: AORTIC VALVE INCOMPETENCE
  29. FUROSEMIDE [Concomitant]
     Indication: AORTIC ANEURYSM
     Dosage: 20 MG, QD
     Dates: start: 20130719, end: 20130726
  30. FUROSEMIDE [Concomitant]
     Indication: AORTIC VALVE INCOMPETENCE
  31. SELARA [Concomitant]
     Indication: AORTIC ANEURYSM
     Dosage: 25 MG, QD
     Dates: start: 20130719, end: 20130720
  32. SELARA [Concomitant]
     Indication: AORTIC VALVE INCOMPETENCE
  33. BLOSTAR M [Concomitant]
     Indication: GASTRITIS
     Dosage: 20 MG, QD
     Dates: start: 20130719
  34. DIGOSIN [Concomitant]
     Indication: AORTIC ANEURYSM
     Dosage: 0.125 MG, QD
     Dates: start: 20130719, end: 20130728
  35. DIGOSIN [Concomitant]
     Indication: AORTIC VALVE INCOMPETENCE
  36. WARFARIN [Concomitant]
     Indication: AORTIC ANEURYSM
     Dosage: 3 MG, QD
     Dates: start: 20130719
  37. WARFARIN [Concomitant]
     Indication: AORTIC VALVE INCOMPETENCE
  38. ALDACTONE A [Concomitant]
     Indication: AORTIC ANEURYSM
     Dosage: 25 MG, QD
     Dates: start: 20130720, end: 20130726
  39. ALDACTONE A [Concomitant]
     Indication: AORTIC VALVE INCOMPETENCE
  40. ASCATE [Concomitant]
     Indication: HYPOKALAEMIA
     Dosage: 300 MG, TID
     Dates: start: 20130721
  41. BOLHEAL [Concomitant]
     Indication: HAEMOSTASIS
     Dosage: 5 ML, QD
     Dates: start: 20130717, end: 20130717
  42. SURGICEL ABSORBABLE HEMOSTAT [Concomitant]
     Indication: HAEMOSTASIS
     Dosage: 3 PACKAGES , QD
     Dates: start: 20130717, end: 20130717
  43. SURGICEL ABSORBABLE HEMOSTAT [Concomitant]
     Dosage: 1 SHEET , QD, OTHER
     Dates: start: 20130717, end: 20130717
  44. RED BLOOD CELLS, CONCENTRATED [Concomitant]
  45. PLATELETS, CONCENTRATED [Concomitant]
  46. PLASMA DERIVATIVES [Concomitant]
  47. PLASMA, FRESH FROZEN [Concomitant]

REACTIONS (3)
  - Pericardial effusion [Recovered/Resolved]
  - Rectal ulcer [Recovering/Resolving]
  - Atrial fibrillation [Recovered/Resolved]
